FAERS Safety Report 5844920-X (Version None)
Quarter: 2008Q3

REPORT INFORMATION
  Report Type: 
  Country: None (occurrence: None)
  Receive Date: 20080814
  Receipt Date: 20080806
  Transmission Date: 20090109
  Serious: Yes (Hospitalization)
  Sender: FDA-Public Use
  Company Number: GB-AMGEN-US295429

PATIENT
  Sex: Female
  Weight: 58.8 kg

DRUGS (4)
  1. ENBREL [Suspect]
     Indication: RHEUMATOID ARTHRITIS
     Route: 058
     Dates: start: 20050401, end: 20080610
  2. DESOGESTREL [Suspect]
     Route: 048
  3. DICLOFENAC SODIUM [Suspect]
     Route: 065
  4. METHOTREXATE [Concomitant]
     Indication: RHEUMATOID ARTHRITIS
     Route: 048

REACTIONS (1)
  - CEREBRAL VENOUS THROMBOSIS [None]
